FAERS Safety Report 24670600 (Version 1)
Quarter: 2024Q4

REPORT INFORMATION
  Report Type: Spontaneous
  Country: US (occurrence: None)
  Receive Date: 20241126
  Receipt Date: 20241126
  Transmission Date: 20250114
  Serious: No
  Sender: Public
  Company Number: None

PATIENT
  Age: 55 Year
  Sex: Female
  Weight: 66.6 kg

DRUGS (10)
  1. BOTOX [Suspect]
     Active Substance: ONABOTULINUMTOXINA
     Indication: Micturition urgency
     Dates: start: 20241119
  2. BOTOX [Suspect]
     Active Substance: ONABOTULINUMTOXINA
     Indication: Bladder pain
  3. BOTOX [Suspect]
     Active Substance: ONABOTULINUMTOXINA
     Indication: Cystitis interstitial
  4. AMBIEN [Concomitant]
     Active Substance: ZOLPIDEM TARTRATE
  5. trazadome [Concomitant]
  6. ACYCLOVIR [Concomitant]
     Active Substance: ACYCLOVIR
  7. OXYCODONE [Concomitant]
     Active Substance: OXYCODONE
  8. GABAPENTIN [Concomitant]
     Active Substance: GABAPENTIN
  9. PROZAC [Concomitant]
     Active Substance: FLUOXETINE HYDROCHLORIDE
  10. phenazopyridone [Concomitant]

REACTIONS (8)
  - Post procedural complication [None]
  - Wrong technique in product usage process [None]
  - Anal hypoaesthesia [None]
  - Anal incontinence [None]
  - Flatulence [None]
  - Proctalgia [None]
  - Emotional distress [None]
  - Iatrogenic injury [None]

NARRATIVE: CASE EVENT DATE: 20241119
